FAERS Safety Report 8393224-2 (Version None)
Quarter: 2012Q2

REPORT INFORMATION
  Report Type: 
  Country: None (occurrence: None)
  Receive Date: 20120529
  Receipt Date: 20120517
  Transmission Date: 20120825
  Serious: No
  Sender: FDA-Public Use
  Company Number: US-ABBOTT-12P-163-0937087-00

PATIENT
  Age: 48 Year
  Sex: Male
  Weight: 113.5 kg

DRUGS (7)
  1. ONGLIZA [Concomitant]
     Indication: TYPE 2 DIABETES MELLITUS
  2. GLIMEPIRIDE [Concomitant]
     Indication: TYPE 2 DIABETES MELLITUS
  3. METFORMIN HCL [Concomitant]
     Indication: TYPE 2 DIABETES MELLITUS
  4. ANDROGEL [Suspect]
     Indication: BLOOD TESTOSTERONE DECREASED
     Dosage: 2 PUMPS DAILY, APPLYING MEDICATION TO UPPER ARM + SHOULDERS.
     Route: 061
     Dates: start: 20120503
  5. LOSARTAN POTASSIUM [Concomitant]
     Indication: HYPERTENSION
  6. UNKNOWN HERBAL SUPPLEMENTS [Concomitant]
     Indication: PRODUCT USED FOR UNKNOWN INDICATION
  7. LOVASTATIN [Concomitant]
     Indication: BLOOD CHOLESTEROL INCREASED

REACTIONS (1)
  - FATIGUE [None]
